FAERS Safety Report 10224741 (Version 7)
Quarter: 2017Q4

REPORT INFORMATION
  Report Type: Spontaneous
  Country: US (occurrence: US)
  Receive Date: 20140609
  Receipt Date: 20171120
  Transmission Date: 20180320
  Serious: Yes (Hospitalization, Disabling, Other)
  Sender: FDA-Public Use
  Company Number: US-009507513-1103USA03206

PATIENT
  Sex: Female
  Weight: 52.61 kg

DRUGS (5)
  1. ALENDRONATE SODIUM. [Suspect]
     Active Substance: ALENDRONATE SODIUM
     Indication: OSTEOPENIA
     Dosage: 70 MG, UNK
     Route: 048
     Dates: start: 20080404, end: 20100224
  2. FOSAMAX [Suspect]
     Active Substance: ALENDRONATE SODIUM
     Indication: OSTEOPENIA
     Dosage: 5 MG, UNK
     Route: 048
     Dates: start: 199711
  3. FOSAMAX [Suspect]
     Active Substance: ALENDRONATE SODIUM
     Indication: OSTEOPENIA
     Dosage: 10 MG, QD
     Route: 048
     Dates: start: 19981111
  4. FOSAMAX [Suspect]
     Active Substance: ALENDRONATE SODIUM
     Indication: OSTEOPENIA
     Dosage: 70 MG, UNK
     Route: 048
     Dates: start: 20040119, end: 20080522
  5. HORMONES (UNSPECIFIED) [Concomitant]
     Active Substance: UNSPECIFIED INGREDIENT
     Indication: PRODUCT USED FOR UNKNOWN INDICATION
     Dosage: UNK
     Route: 065
     Dates: start: 1988, end: 2009

REACTIONS (43)
  - Osteoporosis [Unknown]
  - Sensitivity to weather change [Unknown]
  - Osteoarthritis [Unknown]
  - Osteonecrosis [Unknown]
  - Gingival recession [Unknown]
  - Wrist surgery [Unknown]
  - Tooth disorder [Unknown]
  - Rotator cuff syndrome [Unknown]
  - Bone loss [Unknown]
  - Drug ineffective [Unknown]
  - Intramedullary rod insertion [Unknown]
  - Tooth fracture [Unknown]
  - Fatigue [Recovered/Resolved]
  - Haematoma [Unknown]
  - Removal of internal fixation [Unknown]
  - Radius fracture [Unknown]
  - Viral upper respiratory tract infection [Unknown]
  - Osteoarthritis [Unknown]
  - Tooth fracture [Unknown]
  - Bursitis [Recovered/Resolved]
  - Internal fixation of fracture [Unknown]
  - Stress fracture [Unknown]
  - Lymphadenopathy [Unknown]
  - Tooth fracture [Unknown]
  - Vulvovaginal mycotic infection [Unknown]
  - Low turnover osteopathy [Unknown]
  - Gingival recession [Unknown]
  - Carpal tunnel syndrome [Recovered/Resolved]
  - Scoliosis [Unknown]
  - Fibrocystic breast disease [Unknown]
  - Fall [Unknown]
  - Adverse event [Unknown]
  - Intramedullary rod insertion [Recovered/Resolved]
  - Femur fracture [Recovered/Resolved]
  - Femur fracture [Recovered/Resolved]
  - Polymyalgia rheumatica [Recovered/Resolved]
  - Meralgia paraesthetica [Unknown]
  - Sciatica [Unknown]
  - Tonsillectomy [Unknown]
  - Anaemia postoperative [Unknown]
  - Tooth fracture [Unknown]
  - Neuropathy peripheral [Recovered/Resolved]
  - Sleep disorder [Recovered/Resolved]

NARRATIVE: CASE EVENT DATE: 199810
